FAERS Safety Report 5707057-6 (Version None)
Quarter: 2008Q2

REPORT INFORMATION
  Report Type: 
  Country: None (occurrence: None)
  Receive Date: 20080416
  Receipt Date: 20080408
  Transmission Date: 20081010
  Serious: Yes (Hospitalization)
  Sender: FDA-Public Use
  Company Number: B0516115A

PATIENT
  Age: 48 Year
  Sex: Female

DRUGS (6)
  1. TELZIR [Suspect]
     Indication: HIV INFECTION
     Route: 048
     Dates: start: 20071217, end: 20080303
  2. TRUVADA [Suspect]
     Indication: HIV INFECTION
     Route: 048
     Dates: start: 20071217, end: 20080303
  3. NORVIR [Suspect]
     Indication: HIV INFECTION
     Route: 048
     Dates: start: 20071217, end: 20080303
  4. BACTRIM [Suspect]
     Indication: PROPHYLAXIS
     Route: 048
     Dates: start: 20071126, end: 20080220
  5. FLAGYL [Concomitant]
     Indication: VAGINAL INFECTION
     Route: 065
     Dates: start: 20080220, end: 20080228
  6. VIBRAMYCIN [Concomitant]
     Indication: VAGINAL INFECTION
     Route: 065
     Dates: start: 20080220, end: 20080228

REACTIONS (10)
  - ANOREXIA [None]
  - BLOOD CREATININE INCREASED [None]
  - HAEMATURIA [None]
  - HEADACHE [None]
  - LEUKOCYTURIA [None]
  - NAUSEA [None]
  - PROTEINURIA [None]
  - PYREXIA [None]
  - RENAL FAILURE [None]
  - VOMITING [None]
